FAERS Safety Report 7109925-X (Version None)
Quarter: 2010Q4

REPORT INFORMATION
  Report Type: 
  Country: None (occurrence: None)
  Receive Date: 20101118
  Receipt Date: 20101111
  Transmission Date: 20110411
  Serious: Yes (Other)
  Sender: FDA-Public Use
  Company Number: JP-PFIZER INC-2010146272

PATIENT
  Age: 5 Year
  Sex: Female

DRUGS (3)
  1. GENOTROPIN TC [Suspect]
     Indication: DWARFISM
     Dosage: 2.8 MG, WEEKLY
     Route: 058
     Dates: start: 20081127, end: 20091216
  2. GENOTROPIN TC [Suspect]
     Indication: SMALL FOR DATES BABY
     Dosage: 3.4 MG, WEEKLY
     Dates: start: 20091217, end: 20100217
  3. GENOTROPIN TC [Suspect]
     Dosage: 3.8 MG, WEEKLY
     Dates: start: 20100218, end: 20101110

REACTIONS (2)
  - ADENOIDAL HYPERTROPHY [None]
  - OSTEONECROSIS [None]
